FAERS Safety Report 25704827 (Version 1)
Quarter: 2025Q3

REPORT INFORMATION
  Report Type: Spontaneous
  Country: US (occurrence: US)
  Receive Date: 20250820
  Receipt Date: 20250820
  Transmission Date: 20251021
  Serious: No
  Sender: ORBION PHARMACEUTICALS PRIVATE LIMITED
  Company Number: US-OrBion-000008

PATIENT
  Sex: Female

DRUGS (1)
  1. MODAFINIL [Suspect]
     Active Substance: MODAFINIL
     Indication: Narcolepsy
     Route: 048
     Dates: start: 20250708

REACTIONS (1)
  - Drug ineffective [Not Recovered/Not Resolved]
